FAERS Safety Report 5627201-9 (Version None)
Quarter: 2008Q1

REPORT INFORMATION
  Report Type: 
  Country: None (occurrence: None)
  Receive Date: 20080212
  Receipt Date: 20080212
  Transmission Date: 20080703
  Serious: Yes (Hospitalization)
  Sender: FDA-Public Use
  Company Number: None

PATIENT
  Age: 67 Year
  Sex: Male
  Weight: 83.6 kg

DRUGS (3)
  1. WARFARIN SODIUM [Suspect]
     Indication: ATRIAL FIBRILLATION
     Dosage: 5 MG DAILY PO
     Route: 048
  2. METOPROLOL TARTRATE [Concomitant]
  3. POTASSIUM CHLORIDE [Concomitant]

REACTIONS (4)
  - CARDIOMYOPATHY [None]
  - CELLULITIS [None]
  - DIABETES MELLITUS [None]
  - PERIPHERAL VASCULAR DISORDER [None]
